FAERS Safety Report 4705689-5 (Version None)
Quarter: 2005Q2

REPORT INFORMATION
  Report Type: 
  Country: None (occurrence: None)
  Receive Date: 20050629
  Receipt Date: 20050621
  Transmission Date: 20051028
  Serious: Yes (Other)
  Sender: FDA-Public Use
  Company Number: 2005-06-1217

PATIENT
  Sex: Female

DRUGS (1)
  1. PEG-INTRON [Suspect]
     Indication: NEOPLASM MALIGNANT
     Dosage: SUBCUTANEOUS
     Route: 058

REACTIONS (1)
  - CARDIAC DISORDER [None]
